FAERS Safety Report 5708938-X (Version None)
Quarter: 2008Q2

REPORT INFORMATION
  Report Type: 
  Country: None (occurrence: None)
  Receive Date: 20080418
  Receipt Date: 20080409
  Transmission Date: 20081010
  Serious: Yes (Other)
  Sender: FDA-Public Use
  Company Number: DE-ROCHE-558614

PATIENT
  Sex: Male

DRUGS (5)
  1. ROCEPHIN [Suspect]
     Indication: PROSTATITIS
     Route: 065
  2. TARCEVA [Suspect]
     Route: 065
     Dates: start: 20070101
  3. TARCEVA [Suspect]
     Dosage: DOSE REDUCED
     Route: 065
  4. TARCEVA [Suspect]
     Route: 065
  5. CEFACLOR [Suspect]
     Indication: PROSTATITIS
     Route: 065

REACTIONS (6)
  - HYPERHIDROSIS [None]
  - ILL-DEFINED DISORDER [None]
  - PHOTOSENSITIVITY REACTION [None]
  - PROSTATITIS [None]
  - RASH [None]
  - UNEVALUABLE EVENT [None]
